FAERS Safety Report 10026452 (Version 2)
Quarter: 2014Q1

REPORT INFORMATION
  Report Type: Spontaneous
  Country: US (occurrence: US)
  Receive Date: 20140321
  Receipt Date: 20140327
  Transmission Date: 20141002
  Serious: No
  Sender: FDA-Public Use
  Company Number: US-009507513-1403USA008117

PATIENT
  Sex: Male

DRUGS (13)
  1. TEMODAR [Suspect]
     Indication: MALIGNANT MELANOMA STAGE IV
     Dosage: 140 MG, ONCE A DAY
     Route: 048
     Dates: start: 20140205, end: 2014
  2. CELEXA [Concomitant]
  3. SEROQUEL [Concomitant]
  4. LITHIUM [Concomitant]
  5. LORAZEPAM [Concomitant]
  6. AMLODIPINE [Concomitant]
  7. COMPAZINE [Concomitant]
  8. ZOFRAN [Concomitant]
  9. PHENERGAN (PROMETHAZINE HYDROCHLORIDE) [Concomitant]
  10. IBUPROFEN [Concomitant]
  11. TYLENOL [Concomitant]
  12. OXYCODONE [Concomitant]
  13. GABAPENTIN [Concomitant]

REACTIONS (5)
  - Blood lactate dehydrogenase increased [Unknown]
  - Alanine aminotransferase increased [Unknown]
  - Aspartate aminotransferase increased [Unknown]
  - Drug ineffective [Unknown]
  - Blood alkaline phosphatase increased [Unknown]
